FAERS Safety Report 9649621 (Version 2)
Quarter: 2013Q4

REPORT INFORMATION
  Report Type: Spontaneous
  Country: JP (occurrence: JP)
  Receive Date: 20131028
  Receipt Date: 20131028
  Transmission Date: 20140711
  Serious: Yes (Other)
  Sender: FDA-Public Use
  Company Number: JP-009507513-1310JPN003344

PATIENT
  Age: 75 Year
  Sex: Female

DRUGS (48)
  1. IVEMEND [Suspect]
     Indication: PROPHYLAXIS OF NAUSEA AND VOMITING
     Dosage: 150 MG, QD
     Route: 041
     Dates: start: 20130605, end: 20130605
  2. IVEMEND [Suspect]
     Dosage: 150 MG, QD
     Route: 041
     Dates: start: 20130703, end: 20130703
  3. IVEMEND [Suspect]
     Dosage: 150 MG, QD
     Route: 041
     Dates: start: 20130806, end: 20130806
  4. IVEMEND [Suspect]
     Dosage: 150 MG, QD
     Route: 041
     Dates: start: 20130905, end: 20130905
  5. EMEND [Suspect]
     Indication: PROPHYLAXIS OF NAUSEA AND VOMITING
     Dosage: 80 MG, QD
     Route: 048
     Dates: start: 20130608, end: 20130609
  6. EMEND [Suspect]
     Dosage: 80 MG, QD
     Route: 048
     Dates: start: 20130706, end: 20130707
  7. EMEND [Suspect]
     Dosage: 80 MG, QD
     Route: 048
     Dates: start: 20130809, end: 20130810
  8. EMEND [Suspect]
     Dosage: 80 MG, QD
     Route: 048
     Dates: start: 20130908, end: 20130909
  9. PLATOSIN [Suspect]
     Indication: NON-SMALL CELL LUNG CANCER
     Dosage: UNK
     Route: 041
     Dates: start: 20130605, end: 20130605
  10. PLATOSIN [Suspect]
     Dosage: UNK
     Route: 041
     Dates: start: 20130703, end: 20130703
  11. PLATOSIN [Suspect]
     Dosage: UNK
     Route: 041
     Dates: start: 20130806, end: 20130806
  12. PLATOSIN [Suspect]
     Dosage: UNK
     Route: 041
     Dates: start: 20130905, end: 20130905
  13. GEMZAR [Suspect]
     Indication: NON-SMALL CELL LUNG CANCER
     Dosage: UNK
     Route: 041
     Dates: start: 20130605, end: 20130605
  14. GEMZAR [Suspect]
     Dosage: UNK
     Route: 041
     Dates: start: 20130703, end: 20130703
  15. GEMZAR [Suspect]
     Dosage: UNK
     Route: 041
     Dates: start: 20130806, end: 20130806
  16. GEMZAR [Suspect]
     Dosage: UNK
     Route: 041
     Dates: start: 20130905, end: 20130905
  17. DECADRON PHOSPHATE INJECTION [Concomitant]
     Dosage: UNK
     Dates: start: 20130605, end: 20130605
  18. DECADRON PHOSPHATE INJECTION [Concomitant]
     Dosage: UNK
     Dates: start: 20130703, end: 20130703
  19. DECADRON PHOSPHATE INJECTION [Concomitant]
     Dosage: UNK
     Dates: start: 20130806, end: 20130806
  20. DECADRON PHOSPHATE INJECTION [Concomitant]
     Dosage: UNK
     Dates: start: 20130905, end: 20130905
  21. GRANISETRON [Concomitant]
     Dosage: UNK
     Dates: start: 20130605, end: 20130605
  22. GRANISETRON [Concomitant]
     Dosage: UNK
     Dates: start: 20130703, end: 20130703
  23. GRANISETRON [Concomitant]
     Dosage: UNK
     Dates: start: 20130806, end: 20130806
  24. GRANISETRON [Concomitant]
     Dosage: UNK
     Dates: start: 20130905, end: 20130905
  25. BASEN OD [Concomitant]
     Dosage: UNK
     Dates: start: 20130605, end: 20130609
  26. BASEN OD [Concomitant]
     Dosage: UNK
     Dates: start: 20130703, end: 20130707
  27. BASEN OD [Concomitant]
     Dosage: UNK
     Dates: start: 20130806, end: 20130810
  28. BASEN OD [Concomitant]
     Dosage: UNK
     Dates: start: 20130905, end: 20130909
  29. TANATRIL [Concomitant]
     Dosage: UNK
     Dates: start: 20130605, end: 20130609
  30. TANATRIL [Concomitant]
     Dosage: UNK
     Dates: start: 20130703, end: 20130707
  31. TANATRIL [Concomitant]
     Dosage: UNK
     Dates: start: 20130806, end: 20130810
  32. TANATRIL [Concomitant]
     Dosage: UNK
     Dates: start: 20130905, end: 20130909
  33. MEVALOTIN [Concomitant]
     Dosage: UNK
     Dates: start: 20130605, end: 20130609
  34. MEVALOTIN [Concomitant]
     Dosage: UNK
     Dates: start: 20130703, end: 20130707
  35. MEVALOTIN [Concomitant]
     Dosage: UNK
     Dates: start: 20130806, end: 20130810
  36. GOODMIN [Concomitant]
     Dosage: UNK
     Dates: start: 20130605, end: 20130609
  37. GOODMIN [Concomitant]
     Dosage: UNK
     Dates: start: 20130703, end: 20130707
  38. GOODMIN [Concomitant]
     Dosage: UNK
     Dates: start: 20130806, end: 20130810
  39. GOODMIN [Concomitant]
     Dosage: UNK
     Dates: start: 20130905, end: 20130909
  40. MYSLEE [Concomitant]
     Dosage: UNK
     Dates: start: 20130605, end: 20130609
  41. MYSLEE [Concomitant]
     Dosage: UNK
     Dates: start: 20130703, end: 20130707
  42. MYSLEE [Concomitant]
     Dosage: UNK
     Dates: start: 20130806, end: 20130810
  43. MYSLEE [Concomitant]
     Dosage: UNK
     Dates: start: 20130905, end: 20130909
  44. DECADRON (DEXAMETHASONE) [Concomitant]
     Dosage: UNK
     Dates: start: 20130606, end: 20130608
  45. DECADRON (DEXAMETHASONE) [Concomitant]
     Dosage: UNK
     Dates: start: 20130704, end: 20130706
  46. DECADRON (DEXAMETHASONE) [Concomitant]
     Dosage: UNK
     Dates: start: 20130807, end: 20130809
  47. DECADRON (DEXAMETHASONE) [Concomitant]
     Dosage: UNK
     Dates: start: 20130906, end: 20130908
  48. MEVALOTIN [Concomitant]
     Dosage: UNK
     Dates: start: 20130905, end: 20130909

REACTIONS (5)
  - Neutropenia [Recovered/Resolved]
  - Alanine aminotransferase increased [Recovered/Resolved]
  - Anaemia [Unknown]
  - White blood cell count decreased [Unknown]
  - Platelet count decreased [Unknown]
